FAERS Safety Report 9341023 (Version 2)
Quarter: 2013Q2

REPORT INFORMATION
  Report Type: Spontaneous
  Country: PT (occurrence: PT)
  Receive Date: 20130610
  Receipt Date: 20130621
  Transmission Date: 20140414
  Serious: Yes (Death)
  Sender: FDA-Public Use
  Company Number: PT-B.I. PHARMACEUTICALS,INC./RIDGEFIELD-2013-BI-16288PO

PATIENT
  Age: 83 Year
  Sex: Female
  Weight: 60 kg

DRUGS (3)
  1. PRADAXA [Suspect]
     Dosage: 110 MG
     Route: 048
  2. CIPROFLOXACIN [Concomitant]
     Dates: start: 20130515, end: 20130523
  3. LISINOPRIL [Concomitant]
     Dates: start: 20130520, end: 20130529

REACTIONS (2)
  - Gastrointestinal haemorrhage [Fatal]
  - Renal failure acute [Fatal]
